FAERS Safety Report 15497878 (Version 1)
Quarter: 2018Q4

REPORT INFORMATION
  Report Type: Spontaneous
  Country: US (occurrence: US)
  Receive Date: 20181015
  Receipt Date: 20181015
  Transmission Date: 20190205
  Serious: No
  Sender: FDA-Public Use
  Company Number: US-PFIZER INC-2018406162

PATIENT
  Age: 54 Year
  Sex: Male

DRUGS (3)
  1. KENALOG [Suspect]
     Active Substance: TRIAMCINOLONE ACETONIDE
     Dosage: UNK
  2. KETOROLAC TROMETHAMINE. [Suspect]
     Active Substance: KETOROLAC TROMETHAMINE
     Dosage: UNK
  3. CELESTONE [Suspect]
     Active Substance: BETAMETHASONE
     Dosage: UNK

REACTIONS (1)
  - Drug effect incomplete [Unknown]
